FAERS Safety Report 7010765-0 (Version None)
Quarter: 2010Q3

REPORT INFORMATION
  Report Type: 
  Country: None (occurrence: None)
  Receive Date: 20100923
  Receipt Date: 20100917
  Transmission Date: 20110219
  Serious: Yes (Other)
  Sender: FDA-Public Use
  Company Number: US-PFIZER INC-2010118154

PATIENT
  Sex: Female
  Weight: 55 kg

DRUGS (11)
  1. CHANTIX [Suspect]
     Indication: SMOKING CESSATION THERAPY
     Dosage: 0.5 MG, 1X/DAY
     Route: 048
     Dates: start: 20040101
  2. CHANTIX [Suspect]
     Dosage: 0.5 MG, 1X/DAY
     Route: 048
     Dates: start: 20100801, end: 20100901
  3. NEURONTIN [Concomitant]
     Indication: BACK PAIN
     Dosage: 300 MG, 3X/DAY
  4. MIRAPEX [Concomitant]
     Indication: RESTLESS LEGS SYNDROME
     Dosage: 0.125 MG, 1X/DAY
     Route: 048
  5. SYNTHROID [Concomitant]
     Indication: THYROID DISORDER
     Dosage: 50 UG, 1X/DAY
     Route: 048
     Dates: start: 20070101
  6. EFFEXOR [Concomitant]
     Indication: DEPRESSION
     Dosage: 150 MG, 2X/DAY
     Route: 048
  7. FUROSEMIDE [Concomitant]
     Indication: JOINT SWELLING
     Dosage: 40 MG, 1X/DAY
     Dates: start: 20100101
  8. FUROSEMIDE [Concomitant]
     Indication: OEDEMA PERIPHERAL
  9. KLOR-CON [Concomitant]
     Dosage: UNK
  10. KLONOPIN [Concomitant]
     Indication: ANXIETY
     Dosage: 0.5 MG, 1X/DAY
     Route: 048
  11. CYTOMEL [Concomitant]
     Indication: THYROID DISORDER
     Dosage: 5 UG, 1X/DAY
     Route: 048
     Dates: start: 20070101

REACTIONS (5)
  - CONFUSIONAL STATE [None]
  - INSOMNIA [None]
  - NAUSEA [None]
  - NIGHT SWEATS [None]
  - PANIC ATTACK [None]
